FAERS Safety Report 9079458 (Version 1)
Quarter: 2013Q1

REPORT INFORMATION
  Report Type: Report from Study
  Country: US (occurrence: US)
  Receive Date: 20130215
  Receipt Date: 20130215
  Transmission Date: 20140127
  Serious: Yes (Hospitalization)
  Sender: FDA-Public Use
  Company Number: US-VERTEX PHARMACEUTICALS INC.-2013-002250

PATIENT
  Age: 27 Year
  Sex: Male

DRUGS (3)
  1. INCIVEK [Suspect]
     Indication: HEPATITIS C
     Route: 065
  2. RIBAVIRIN [Suspect]
     Indication: HEPATITIS C
  3. PEG INTERFERON [Suspect]
     Indication: HEPATITIS C

REACTIONS (7)
  - Irritability [Unknown]
  - Irritable bowel syndrome [Unknown]
  - Visual impairment [Unknown]
  - Asthenia [Unknown]
  - Drug dose omission [Unknown]
  - Rash [Unknown]
  - Anaemia [Unknown]
